FAERS Safety Report 15747074 (Version 1)
Quarter: 2018Q4

REPORT INFORMATION
  Report Type: Spontaneous
  Country: JP (occurrence: JP)
  Receive Date: 20181220
  Receipt Date: 20181220
  Transmission Date: 20190205
  Serious: Yes (Other)
  Sender: FDA-Public Use
  Company Number: JP-BAUSCH-SYM-2013-09262

PATIENT
  Age: 59 Year
  Sex: Male

DRUGS (1)
  1. VISUDYNE [Suspect]
     Active Substance: VERTEPORFIN
     Indication: POLYPOIDAL CHOROIDAL VASCULOPATHY
     Route: 042

REACTIONS (2)
  - Macular pseudohole [Unknown]
  - Retinal thickening [Unknown]
